FAERS Safety Report 16139144 (Version 1)
Quarter: 2019Q2

REPORT INFORMATION
  Report Type: Spontaneous
  Country: US (occurrence: US)
  Receive Date: 20190401
  Receipt Date: 20190401
  Transmission Date: 20190711
  Serious: Yes (Death, Other)
  Sender: FDA-Public Use
  Company Number: US-TERSERA THERAPEUTICS LLC-2019TRS000331

PATIENT

DRUGS (1)
  1. PRIALT [Suspect]
     Active Substance: ZICONOTIDE ACETATE
     Indication: PRODUCT USED FOR UNKNOWN INDICATION
     Dosage: 0.192 MCG, QD (CONCENTRATION: 4.0)
     Route: 037

REACTIONS (6)
  - Poisoning deliberate [Fatal]
  - Arteriosclerosis [Fatal]
  - Obesity [Fatal]
  - Diabetes mellitus [Fatal]
  - Alcohol abuse [Fatal]
  - Hypertension [Fatal]
